FAERS Safety Report 6047805-1 (Version None)
Quarter: 2009Q1

REPORT INFORMATION
  Report Type: 
  Country: None (occurrence: None)
  Receive Date: 20090123
  Receipt Date: 20090115
  Transmission Date: 20090719
  Serious: Yes (Life-Threatening, Hospitalization)
  Sender: FDA-Public Use
  Company Number: FR-AMGEN-UK328562

PATIENT
  Sex: Female
  Weight: 42 kg

DRUGS (5)
  1. KINERET [Suspect]
     Indication: RHEUMATOID ARTHRITIS
     Route: 058
     Dates: start: 20080301, end: 20080509
  2. ACTEMRA [Concomitant]
     Dates: start: 20080711, end: 20081030
  3. ORENCIA [Concomitant]
     Route: 042
     Dates: start: 20080510, end: 20080610
  4. IMUREL [Concomitant]
     Dates: start: 20080510, end: 20080610
  5. METHYLPREDNISOLONE [Concomitant]
     Dates: start: 20080510, end: 20080610

REACTIONS (6)
  - ABSCESS [None]
  - ANAPHYLACTIC SHOCK [None]
  - ARTHRITIS [None]
  - INFUSION RELATED REACTION [None]
  - MYCOBACTERIAL INFECTION [None]
  - SACROILIITIS [None]
